FAERS Safety Report 24325238 (Version 1)
Quarter: 2024Q3

REPORT INFORMATION
  Report Type: Spontaneous
  Country: FR (occurrence: FR)
  Receive Date: 20240916
  Receipt Date: 20240916
  Transmission Date: 20241017
  Serious: Yes (Other)
  Sender: AMGEN
  Company Number: FR-UCBSA-2024046010

PATIENT
  Age: 56 Year
  Sex: Female
  Weight: 58.6 kg

DRUGS (1)
  1. EVENITY [Suspect]
     Active Substance: ROMOSOZUMAB-AQQG
     Indication: Osteoporosis
     Dosage: 210 MILLIGRAM, MONTHLY (QM), SOLUTION FOR INJECTION IN PREFILLED PEN
     Route: 058
     Dates: start: 20240502, end: 20240530

REACTIONS (1)
  - Transient ischaemic attack [Recovered/Resolved]

NARRATIVE: CASE EVENT DATE: 20240601
